FAERS Safety Report 5039293-9 (Version None)
Quarter: 2006Q2

REPORT INFORMATION
  Report Type: 
  Country: None (occurrence: None)
  Receive Date: 20060623
  Receipt Date: 20060612
  Transmission Date: 20061013
  Serious: Yes (Hospitalization)
  Sender: FDA-Public Use
  Company Number: 2006BI007237

PATIENT
  Age: 40 Year
  Sex: Female

DRUGS (4)
  1. AVONEX [Suspect]
     Indication: MULTIPLE SCLEROSIS
     Dates: start: 20030924, end: 20031024
  2. AVONEX [Suspect]
     Indication: MULTIPLE SCLEROSIS
     Dates: start: 20031112
  3. IMMUNE GLOBULIN INTRAVENOUS (HUMAN) [Concomitant]
  4. BLOOD PRESSURE MEDICATION (NOS) [Concomitant]

REACTIONS (6)
  - ANAEMIA [None]
  - BLOOD IRON DECREASED [None]
  - BLOOD PRESSURE INCREASED [None]
  - MENORRHAGIA [None]
  - METRORRHAGIA [None]
  - MULTIPLE SCLEROSIS RELAPSE [None]
